FAERS Safety Report 18271135 (Version 1)
Quarter: 2020Q3

REPORT INFORMATION
  Report Type: Report from Study
  Country: ES (occurrence: ES)
  Receive Date: 20200916
  Receipt Date: 20200916
  Transmission Date: 20201103
  Serious: Yes (Other)
  Sender: FDA-Public Use
  Company Number: ES-AUROBINDO-AUR-APL-2018-019526

PATIENT
  Age: 31 Year

DRUGS (3)
  1. GABAPENTIN. [Suspect]
     Active Substance: GABAPENTIN
     Indication: SPINAL CORD INJURY
     Dosage: 900 MILLIGRAM, ONCE A DAY
     Route: 065
  2. BACLOFEN. [Suspect]
     Active Substance: BACLOFEN
     Indication: SPINAL CORD INJURY
     Dosage: 50 MILLIGRAM, ONCE A DAY
     Route: 065
  3. NABIXIMOLS [Suspect]
     Active Substance: NABIXIMOLS
     Indication: SPINAL CORD INJURY
     Dosage: 6 SPRAYS
     Route: 048

REACTIONS (1)
  - Hallucination [Unknown]
